FAERS Safety Report 8147635 (Version 3)
Quarter: 2013Q3

REPORT INFORMATION
  Report Type: Spontaneous
  Country: US (occurrence: US)
  Receive Date: 20110922
  Receipt Date: 20130725
  Transmission Date: 20140515
  Serious: Yes (Death, Other)
  Sender: FDA-Public Use
  Company Number: US-ASTRAZENECA-2011SE12647

PATIENT
  Age: 45 Year
  Sex: Male
  Weight: 144.2 kg

DRUGS (16)
  1. SEROQUEL [Suspect]
     Route: 048
  2. SEROQUEL [Suspect]
     Route: 048
     Dates: start: 20060118
  3. FENTANYL [Concomitant]
  4. BUPROPION [Concomitant]
  5. GEODON [Concomitant]
     Dates: start: 20060117
  6. BUPROPION HCL [Concomitant]
     Dates: start: 20060119
  7. LISINOPRIL HCTZ [Concomitant]
     Dosage: 20/25 MG
     Dates: start: 20060427
  8. NEXIUM [Concomitant]
     Dates: start: 20090423
  9. MELOXICAM [Concomitant]
     Dates: start: 20091111
  10. OMEPRAZOLE [Concomitant]
     Dates: start: 20100317
  11. ZOLPIDEM [Concomitant]
     Dates: start: 20101119
  12. CLONIDINE [Concomitant]
     Dates: start: 20110308
  13. HYDROCHLOROTHIAZIDE [Concomitant]
     Dates: start: 20111116
  14. CARISOPRODOL [Concomitant]
     Dates: start: 20110117
  15. WARFARIN SODIUM [Concomitant]
     Dates: start: 20110615
  16. TRILIPIX [Concomitant]
     Dates: start: 20120116

REACTIONS (4)
  - Death [Fatal]
  - Pancreatitis [Unknown]
  - Diabetic coma [Unknown]
  - Type 2 diabetes mellitus [Unknown]
